FAERS Safety Report 5410795-6 (Version None)
Quarter: 2007Q3

REPORT INFORMATION
  Report Type: 
  Country: None (occurrence: None)
  Receive Date: 20070810
  Receipt Date: 20070523
  Transmission Date: 20080115
  Serious: No
  Sender: FDA-Public Use
  Company Number: A0652621A

PATIENT
  Age: 42 Year
  Sex: Female

DRUGS (4)
  1. PAXIL CR [Suspect]
     Dosage: 12.5MG THREE TIMES PER DAY
     Route: 048
     Dates: start: 20060801, end: 20070520
  2. BUPROPION HCL [Concomitant]
  3. MULTIVITAMIN [Concomitant]
  4. IRON PILLS [Concomitant]

REACTIONS (3)
  - AMENORRHOEA [None]
  - DIZZINESS [None]
  - FATIGUE [None]
